FAERS Safety Report 6103317-8 (Version None)
Quarter: 2009Q1

REPORT INFORMATION
  Report Type: 
  Country: None (occurrence: None)
  Receive Date: 20090305
  Receipt Date: 20090224
  Transmission Date: 20090719
  Serious: Yes (Hospitalization)
  Sender: FDA-Public Use
  Company Number: US-KINGPHARMUSA00001-K200900189

PATIENT
  Age: 80 Year
  Sex: Female

DRUGS (4)
  1. SEPTRA [Suspect]
     Indication: URINARY TRACT INFECTION
     Dosage: 800/160 MG, BID
     Route: 048
  2. ISOSORBIDE [Concomitant]
     Dosage: 60 MG, QD
  3. GEMFIBROZIL [Concomitant]
     Dosage: 600 MG, BID
  4. TORSEMIDE [Concomitant]
     Dosage: 20 MG, QD

REACTIONS (5)
  - ATRIOVENTRICULAR BLOCK FIRST DEGREE [None]
  - BLOOD CREATININE INCREASED [None]
  - ELECTROCARDIOGRAM QRS COMPLEX PROLONGED [None]
  - ELECTROCARDIOGRAM T WAVE PEAKED [None]
  - HYPERKALAEMIA [None]
